FAERS Safety Report 23715868 (Version 1)
Quarter: 2024Q2

REPORT INFORMATION
  Report Type: Spontaneous
  Country: DE (occurrence: DE)
  Receive Date: 20240408
  Receipt Date: 20240408
  Transmission Date: 20240715
  Serious: No
  Sender: FDA-Public Use
  Company Number: None

PATIENT
  Age: 4 Year
  Sex: Female
  Weight: 17 kg

DRUGS (1)
  1. IBUPROFEN [Suspect]
     Active Substance: IBUPROFEN
     Indication: Febrile infection
     Dosage: 7.5 MILLILITER, QD (EVERY 1 DAY)
     Route: 048
     Dates: start: 20231017, end: 20231019

REACTIONS (3)
  - Aphthous ulcer [Recovered/Resolved]
  - Oral pain [Recovered/Resolved]
  - Mouth haemorrhage [Recovered/Resolved]

NARRATIVE: CASE EVENT DATE: 20231019
